FAERS Safety Report 22123164 (Version 2)
Quarter: 2023Q2

REPORT INFORMATION
  Report Type: Spontaneous
  Country: BG (occurrence: BG)
  Receive Date: 20230322
  Receipt Date: 20230405
  Transmission Date: 20230721
  Serious: Yes (Other)
  Sender: FDA-Public Use
  Company Number: BG-TOLMAR, INC.-23BG039453

PATIENT
  Age: 77 Year
  Sex: Male

DRUGS (10)
  1. ELIGARD [Suspect]
     Active Substance: LEUPROLIDE ACETATE
     Indication: Prostate cancer
     Dosage: UNK
     Dates: start: 20221028
  2. XTANDI [Suspect]
     Active Substance: ENZALUTAMIDE
     Indication: Prostate cancer
     Dosage: 40 MILLIGRAM, QD 4 TABLETS PER DAY
     Dates: start: 20221028
  3. XTANDI [Suspect]
     Active Substance: ENZALUTAMIDE
     Dosage: 40 MILLIGRAM, QD 4 TABLETS PER DAY
  4. XTANDI [Suspect]
     Active Substance: ENZALUTAMIDE
     Dosage: 40 MILLIGRAM, QD, 40 MILLIGRAM, QD 4 TABLETS PER DAY
  5. XTANDI [Suspect]
     Active Substance: ENZALUTAMIDE
     Dosage: 40 MILLIGRAM, QD, 40 MILLIGRAM, QD 4 TABLETS PER DAY
  6. XGEVA [Suspect]
     Active Substance: DENOSUMAB
     Indication: Prostate cancer
     Dosage: UNK
     Dates: start: 20221028
  7. XGEVA [Suspect]
     Active Substance: DENOSUMAB
     Dosage: UNK
  8. XGEVA [Suspect]
     Active Substance: DENOSUMAB
     Dosage: UNK
  9. XGEVA [Suspect]
     Active Substance: DENOSUMAB
     Dosage: UNK
  10. UNSPECIFIED INGREDIENT [Concomitant]
     Active Substance: UNSPECIFIED INGREDIENT
     Indication: Hypertension

REACTIONS (6)
  - Hydrocalyx [Unknown]
  - Hydroureter [Unknown]
  - Umbilical hernia [Unknown]
  - Osteosclerosis [Unknown]
  - Breath sounds abnormal [Unknown]
  - Back pain [Recovering/Resolving]

NARRATIVE: CASE EVENT DATE: 20230220
